FAERS Safety Report 18041819 (Version 2)
Quarter: 2021Q1

REPORT INFORMATION
  Report Type: Spontaneous
  Country: US (occurrence: US)
  Receive Date: 20200720
  Receipt Date: 20210309
  Transmission Date: 20210419
  Serious: Yes (Hospitalization, Other)
  Sender: FDA-Public Use
  Company Number: US-TEVA-2020-US-1801862

PATIENT
  Age: 61 Year
  Sex: Female
  Weight: 63.5 kg

DRUGS (36)
  1. VITAMIN K1 [Concomitant]
     Active Substance: PHYTONADIONE
     Dosage: 10MG PER 12 HOURS
     Route: 042
  2. DIOVAN [Suspect]
     Active Substance: VALSARTAN
     Dosage: DOSAGE : 80MG
     Route: 048
  3. COLACE [Concomitant]
     Active Substance: DOCUSATE SODIUM
     Dosage: 100MG TWICE  A DAY
     Route: 048
  4. CIPRO [Concomitant]
     Active Substance: CIPROFLOXACIN HYDROCHLORIDE
     Dosage: 400MG
     Route: 042
  5. METOPROLOL. [Concomitant]
     Active Substance: METOPROLOL
     Dosage: 1 MG
     Route: 042
  6. ZOFRAN [Concomitant]
     Active Substance: ONDANSETRON HYDROCHLORIDE
     Dosage: 8 MG EVERY 8 HOURS
     Route: 048
  7. PANTOPRAZOLE [Concomitant]
     Active Substance: PANTOPRAZOLE
     Indication: GASTROINTESTINAL HAEMORRHAGE
     Dosage: 80MG
  8. OCTREOTIDE. [Concomitant]
     Active Substance: OCTREOTIDE
     Dosage: 200 MICROGRAM
     Route: 058
  9. VALSARTAN / HYDROCHLOROTHIAZIDE SOLCO [Suspect]
     Active Substance: HYDROCHLOROTHIAZIDE\VALSARTAN
     Dosage: DOSAGE : 160/12.5MG
     Dates: start: 20131125, end: 20131225
  10. VALSARTAN / HYDROCHLOROTHIAZIDE MYLAN [Suspect]
     Active Substance: HYDROCHLOROTHIAZIDE\VALSARTAN
     Indication: HYPERTENSION
     Dosage: DOSAGE : 160/12.5MG
     Route: 065
  11. HYDRALAZINE [Concomitant]
     Active Substance: HYDRALAZINE HYDROCHLORIDE
     Indication: HYPERTENSION
     Dosage: DOSAGE : 25 MG
  12. NORCO [Concomitant]
     Active Substance: ACETAMINOPHEN\HYDROCODONE BITARTRATE
     Indication: PAIN
     Dosage: 7.5/325 MG EVERY 6 HOURS AS  NEEDED
     Route: 048
  13. PROMETHAZINE [Concomitant]
     Active Substance: PROMETHAZINE HYDROCHLORIDE
     Route: 042
  14. VALSARTAN / HYDROCHLOROTHIAZIDE TEVA [Suspect]
     Active Substance: HYDROCHLOROTHIAZIDE\VALSARTAN
     Indication: HYPERTENSION
     Dosage: DOSAGE : 160/25MG
     Dates: start: 20121010, end: 20130108
  15. VALSARTAN / HYDROCHLOROTHIAZIDE ACTAVIS [Suspect]
     Active Substance: HYDROCHLOROTHIAZIDE\VALSARTAN
     Indication: HYPERTENSION
     Dosage: DOSAGE : 160/12.5MG
     Dates: start: 20150311, end: 20160609
  16. VALSARTAN / HYDROCHLOROTHIAZIDE SOLCO [Suspect]
     Active Substance: HYDROCHLOROTHIAZIDE\VALSARTAN
     Dosage: DOSAGE : 160/12.5MG
     Dates: start: 20170515, end: 20180802
  17. METFORMIN [Concomitant]
     Active Substance: METFORMIN HYDROCHLORIDE
     Indication: DIABETES MELLITUS
     Dosage: 1000 MILLIGRAM DAILY;
     Dates: start: 20130121
  18. LABETALOL [Concomitant]
     Active Substance: LABETALOL\LABETALOL HYDROCHLORIDE
     Indication: HYPERTENSION
     Dosage: 10 MG
     Route: 042
  19. ANCEF [Concomitant]
     Active Substance: CEFAZOLIN SODIUM
     Dosage: 2 GM
     Route: 042
  20. VALSARTAN / HYDROCHLOROTHIAZIDE SOLCO [Suspect]
     Active Substance: HYDROCHLOROTHIAZIDE\VALSARTAN
     Indication: HYPERTENSION
     Dosage: DOSAGE : 160/12.5MG
     Dates: start: 20160904, end: 20170309
  21. LISINOPRIL AND HYDROCHLOROTHIAZIDE [Concomitant]
     Active Substance: HYDROCHLOROTHIAZIDE\LISINOPRIL
     Indication: HYPERTENSION
     Dosage: DOSAGE : 12.5 MG
  22. PROTONIX [Concomitant]
     Active Substance: PANTOPRAZOLE SODIUM
     Dosage: 40MG TWICE DAILY
     Route: 048
  23. DULCOLAX NOS [Concomitant]
     Active Substance: BISACODYL OR DOCUSATE SODIUM
     Dosage: 10 MG
  24. VALSARTAN / HYDROCHLOROTHIAZIDE TEVA [Suspect]
     Active Substance: HYDROCHLOROTHIAZIDE\VALSARTAN
     Dosage: DOSAGE : 160/25MG
     Dates: start: 20131202, end: 20141129
  25. VALSARTAN / HYDROCHLOROTHIAZIDE MYLAN [Suspect]
     Active Substance: HYDROCHLOROTHIAZIDE\VALSARTAN
     Dosage: DOSAGE : 320/12.5 MG
     Route: 065
  26. LANTUS SOLOSTAR [Concomitant]
     Active Substance: INSULIN GLARGINE
     Dosage: 20 UNITS DAILY
     Route: 058
  27. DOCUSATE [Concomitant]
     Active Substance: DOCUSATE
     Dosage: 100MG TWICE DAILY
     Route: 048
  28. ACETAMINOPHEN/ HYDROCODONE [Concomitant]
     Active Substance: ACETAMINOPHEN\HYDROCODONE BITARTRATE
     Dosage: 325/10 MG
     Route: 048
  29. XANAX [Concomitant]
     Active Substance: ALPRAZOLAM
     Indication: INSOMNIA
     Dosage: 1 MG
     Route: 048
  30. NALOXONE [Concomitant]
     Active Substance: NALOXONE
     Dosage: 0.04 MG
     Route: 042
  31. VALSARTAN / HYDROCHLOROTHIAZIDE LUPIN [Suspect]
     Active Substance: HYDROCHLOROTHIAZIDE\VALSARTAN
     Indication: HYPERTENSION
     Dosage: DOSAGE : 320/12.5 MG
     Route: 065
  32. DIOVAN HCT [Suspect]
     Active Substance: HYDROCHLOROTHIAZIDE\VALSARTAN
     Dosage: DOSAGE : 160/25MG
     Route: 048
  33. HYDROMORPHONE [Concomitant]
     Active Substance: HYDROMORPHONE
     Indication: PAIN
     Dosage: 0.2 MG
     Route: 042
  34. FLAGYL [Concomitant]
     Active Substance: METRONIDAZOLE\METRONIDAZOLE HYDROCHLORIDE
     Dosage: 500MG
     Route: 042
     Dates: start: 20160128, end: 20160227
  35. FLUMAZENIL. [Concomitant]
     Active Substance: FLUMAZENIL
     Dosage: 0.2 MG
     Route: 042
  36. CREON [Concomitant]
     Active Substance: PANCRELIPASE AMYLASE\PANCRELIPASE LIPASE\PANCRELIPASE PROTEASE
     Dosage: 36,000 UNITS, TWO CAPSULES THRICE A DAY
     Route: 048

REACTIONS (1)
  - Pancreatic carcinoma [Not Recovered/Not Resolved]
